FAERS Safety Report 4565925-5 (Version None)
Quarter: 2005Q1

REPORT INFORMATION
  Report Type: 
  Country: None (occurrence: None)
  Receive Date: 20050128
  Receipt Date: 20050119
  Transmission Date: 20050727
  Serious: Yes (Life-Threatening, Other)
  Sender: FDA-Public Use
  Company Number: 200510050BVD

PATIENT
  Age: 62 Year
  Sex: Female
  Weight: 51 kg

DRUGS (4)
  1. AVELOX [Suspect]
     Indication: BRONCHITIS ACUTE
     Dosage: 400 MG QD ORAL
     Route: 048
     Dates: start: 20041212
  2. DIPYRONE INJ [Concomitant]
  3. GELOMYRTOL [Concomitant]
  4. METOPROLOL SUCCINATE [Concomitant]

REACTIONS (6)
  - BLOOD PRESSURE DECREASED [None]
  - CHILLS [None]
  - CIRCULATORY COLLAPSE [None]
  - HYPERSENSITIVITY [None]
  - LOSS OF CONSCIOUSNESS [None]
  - PRURITUS GENERALISED [None]
